FAERS Safety Report 15691853 (Version 1)
Quarter: 2018Q4

REPORT INFORMATION
  Report Type: Spontaneous
  Country: BR (occurrence: BR)
  Receive Date: 20181205
  Receipt Date: 20181205
  Transmission Date: 20190205
  Serious: Yes (Death, Hospitalization, Other)
  Sender: FDA-Public Use
  Company Number: BR-JNJFOC-20181141983

PATIENT
  Age: 82 Year
  Sex: Female

DRUGS (3)
  1. LORAZEPAM. [Suspect]
     Active Substance: LORAZEPAM
     Indication: SLEEP DISORDER
     Route: 065
  2. LORAZEPAM. [Suspect]
     Active Substance: LORAZEPAM
     Indication: SLEEP DISORDER
     Route: 065
  3. HALDOL [Suspect]
     Active Substance: HALOPERIDOL
     Indication: AGITATION
     Route: 065

REACTIONS (10)
  - Aphasia [Recovered/Resolved]
  - Wound [Unknown]
  - Cerebrovascular accident [Fatal]
  - Drug dependence [Unknown]
  - Withdrawal syndrome [Unknown]
  - Fluid intake reduced [Recovered/Resolved]
  - Accident [Unknown]
  - Hypersomnia [Unknown]
  - Decreased appetite [Recovered/Resolved]
  - Renal failure [Unknown]

NARRATIVE: CASE EVENT DATE: 2017
